FAERS Safety Report 7346517-1 (Version None)
Quarter: 2011Q1

REPORT INFORMATION
  Report Type: 
  Country: None (occurrence: None)
  Receive Date: 20110311
  Receipt Date: 20110301
  Transmission Date: 20110831
  Serious: Yes (Other)
  Sender: FDA-Public Use
  Company Number: US-SANOFI-AVENTIS-2011SA013041

PATIENT
  Age: 65 Year
  Sex: Female

DRUGS (7)
  1. MULTAQ [Suspect]
     Indication: ATRIAL FIBRILLATION
     Route: 048
     Dates: start: 20110217
  2. MULTIVITAMIN [Concomitant]
  3. TOPIRAMATE [Concomitant]
  4. ANTIDEPRESSANTS [Concomitant]
     Indication: DEPRESSION
  5. POTASSIUM [Concomitant]
  6. TRIAMTERENE [Concomitant]
     Indication: SWELLING
  7. COREG [Concomitant]

REACTIONS (3)
  - ATRIAL FIBRILLATION [None]
  - DYSPNOEA [None]
  - OEDEMA PERIPHERAL [None]
